FAERS Safety Report 6822062-4 (Version None)
Quarter: 2010Q3

REPORT INFORMATION
  Report Type: 
  Country: None (occurrence: None)
  Receive Date: 20100708
  Receipt Date: 20100625
  Transmission Date: 20110219
  Serious: Yes (Life-Threatening)
  Sender: FDA-Public Use
  Company Number: US-BAYER-200943652NA

PATIENT
  Age: 47 Year
  Sex: Female
  Weight: 72 kg

DRUGS (5)
  1. ALEMTUZUMAB [Suspect]
     Indication: MULTIPLE SCLEROSIS
     Dosage: TOTAL DAILY DOSE: 12 MG
     Route: 042
     Dates: start: 20080325, end: 20080329
  2. ALEMTUZUMAB [Suspect]
     Dosage: TOTAL DAILY DOSE: 12 MG
     Route: 042
     Dates: start: 20090331, end: 20090402
  3. LAXATIVES [Concomitant]
     Dates: start: 19950701
  4. ZYRTEC [Concomitant]
     Dates: start: 20080324
  5. IBUPROFEN [Concomitant]

REACTIONS (1)
  - TACHYCARDIA [None]
